FAERS Safety Report 16729110 (Version 2)
Quarter: 2019Q3

REPORT INFORMATION
  Report Type: Report from Study
  Country: AR (occurrence: AR)
  Receive Date: 20190822
  Receipt Date: 20190927
  Transmission Date: 20191005
  Serious: Yes (Other)
  Sender: FDA-Public Use
  Company Number: PHHY2019AR196052

PATIENT
  Age: 33 Year
  Sex: Male

DRUGS (1)
  1. TRILEPTAL [Suspect]
     Active Substance: OXCARBAZEPINE
     Indication: EPILEPSY
     Dosage: 1 DF, BID (MORNING AND NIGHT) (UNITS NOT PROVIDED)
     Route: 065
     Dates: start: 200901

REACTIONS (2)
  - Epilepsy [Recovering/Resolving]
  - Stress [Unknown]

NARRATIVE: CASE EVENT DATE: 200902
